FAERS Safety Report 13137499 (Version 1)
Quarter: 2017Q1

REPORT INFORMATION
  Report Type: Report from Study
  Country: DE (occurrence: DE)
  Receive Date: 20170123
  Receipt Date: 20170123
  Transmission Date: 20170428
  Serious: Yes (Hospitalization)
  Sender: FDA-Public Use
  Company Number: DE-ROCHE-1881614

PATIENT
  Age: 73 Year
  Sex: Female
  Weight: 80 kg

DRUGS (12)
  1. MOXONIDIN [Concomitant]
     Active Substance: MOXONIDINE
     Route: 048
     Dates: start: 20161214
  2. BISOHEXAL [Concomitant]
     Active Substance: BISOPROLOL FUMARATE
     Route: 048
     Dates: start: 20161224
  3. LERCANIDIPINE [Concomitant]
     Active Substance: LERCANIDIPINE
     Route: 048
     Dates: start: 20161122
  4. EPROSARTAN [Concomitant]
     Active Substance: EPROSARTAN
     Route: 048
     Dates: start: 20160824
  5. SODIUM CHLORIDE. [Concomitant]
     Active Substance: SODIUM CHLORIDE
     Route: 042
     Dates: start: 20161228
  6. MCP [Concomitant]
     Active Substance: METOCLOPRAMIDE HYDROCHLORIDE
     Route: 042
     Dates: start: 20161228
  7. CARBOPLATIN. [Suspect]
     Active Substance: CARBOPLATIN
     Indication: OVARIAN CANCER RECURRENT
     Dosage: DATE OF LAST DOSE PRIOR TO SAE: 02/DEC/2015
     Route: 042
     Dates: start: 20150702
  8. BEVACIZUMAB [Suspect]
     Active Substance: BEVACIZUMAB
     Dosage: LAST DOSE PRIOR TO SAE ON 08/DEC/2016
     Route: 042
     Dates: start: 20160219, end: 20161228
  9. HYDROCHLOROTHIAZIDE. [Concomitant]
     Active Substance: HYDROCHLOROTHIAZIDE
     Route: 048
     Dates: start: 20160824
  10. BEVACIZUMAB [Suspect]
     Active Substance: BEVACIZUMAB
     Indication: OVARIAN CANCER RECURRENT
     Dosage: LAST DOSE PRIOT TO SAE ON 16/DEC/2015
     Route: 042
     Dates: start: 20150730
  11. DOXORUBICIN [Suspect]
     Active Substance: DOXORUBICIN
     Indication: OVARIAN CANCER RECURRENT
     Dosage: DATE OF LAST DOSE PRIOR TO SAE: 02/DEC/2015
     Route: 042
     Dates: start: 20150702
  12. VOMEX A [Concomitant]
     Active Substance: DIMENHYDRINATE
     Route: 042
     Dates: start: 20161228

REACTIONS (2)
  - Subileus [Recovered/Resolved]
  - Ascites [Recovered/Resolved]

NARRATIVE: CASE EVENT DATE: 20150710
